FAERS Safety Report 19281643 (Version 2)
Quarter: 2021Q3

REPORT INFORMATION
  Report Type: Report from Study
  Country: None (occurrence: US)
  Receive Date: 20210521
  Receipt Date: 20210719
  Transmission Date: 20211014
  Serious: Yes (Hospitalization, Other)
  Sender: FDA-Public Use
  Company Number: US-ABBVIE-21K-163-3907703-00

PATIENT
  Age: 64 Year
  Sex: Female

DRUGS (3)
  1. COVID?19 VACCINE [Concomitant]
     Indication: COVID-19 IMMUNISATION
     Route: 030
  2. HUMIRA [Suspect]
     Active Substance: ADALIMUMAB
     Indication: HIDRADENITIS
     Route: 058
  3. HUMIRA [Suspect]
     Active Substance: ADALIMUMAB
     Route: 058

REACTIONS (8)
  - Tobacco withdrawal symptoms [Recovering/Resolving]
  - Arthralgia [Recovering/Resolving]
  - Fasciitis [Recovering/Resolving]
  - Hospitalisation [Recovering/Resolving]
  - Hidradenitis [Recovering/Resolving]
  - Vomiting [Recovering/Resolving]
  - Balanoposthitis [Recovering/Resolving]
  - Surgery [Unknown]

NARRATIVE: CASE EVENT DATE: 202104
